FAERS Safety Report 25614409 (Version 2)
Quarter: 2025Q3

REPORT INFORMATION
  Report Type: Report from Study
  Country: KR (occurrence: KR)
  Receive Date: 20250729
  Receipt Date: 20250805
  Transmission Date: 20251020
  Serious: Yes (Hospitalization)
  Sender: ABBVIE
  Company Number: KR-ABBVIE-6386527

PATIENT
  Age: 48 Year
  Sex: Male
  Weight: 55 kg

DRUGS (6)
  1. RINVOQ [Suspect]
     Active Substance: UPADACITINIB
     Indication: Crohn^s disease
     Route: 048
     Dates: start: 20250604, end: 20250624
  2. SULFACETAMIDE SODIUM [Concomitant]
     Active Substance: SULFACETAMIDE SODIUM
     Indication: Crohn^s disease
     Dates: start: 20250521, end: 202506
  3. Solondo [Concomitant]
     Indication: Crohn^s disease
     Dates: start: 20230531
  4. Solondo [Concomitant]
     Indication: Crohn^s disease
     Route: 048
     Dates: start: 20250521, end: 202506
  5. Solondo [Concomitant]
     Indication: Crohn^s disease
     Route: 048
     Dates: start: 202506, end: 202506
  6. PENTASA [Concomitant]
     Active Substance: MESALAMINE
     Indication: Crohn^s disease
     Route: 048
     Dates: start: 20240328

REACTIONS (1)
  - Abdominal abscess [Recovered/Resolved with Sequelae]

NARRATIVE: CASE EVENT DATE: 20250624
